FAERS Safety Report 22267934 (Version 2)
Quarter: 2023Q2

REPORT INFORMATION
  Report Type: Spontaneous
  Country: DE (occurrence: DE)
  Receive Date: 20230430
  Receipt Date: 20230612
  Transmission Date: 20230721
  Serious: Yes (Other)
  Sender: FDA-Public Use
  Company Number: DE-002147023-NVSC2023DE095882

PATIENT
  Age: 54 Year
  Sex: Female
  Weight: 62 kg

DRUGS (11)
  1. MAYZENT [Suspect]
     Active Substance: SIPONIMOD
     Indication: Secondary progressive multiple sclerosis
     Dosage: 2 MG, QD (AS TITRATION PACK)
     Route: 048
     Dates: start: 20230414
  2. MAYZENT [Suspect]
     Active Substance: SIPONIMOD
     Dosage: 0.25 MG
     Route: 065
  3. MAYZENT [Suspect]
     Active Substance: SIPONIMOD
     Dosage: 0.5 MG
     Route: 065
  4. MAYZENT [Suspect]
     Active Substance: SIPONIMOD
     Dosage: 0.75 MG
     Route: 065
  5. MAYZENT [Suspect]
     Active Substance: SIPONIMOD
     Dosage: 1.25 MG
     Route: 065
     Dates: end: 20230420
  6. LEVOTHYROXINE [Concomitant]
     Active Substance: LEVOTHYROXINE
     Indication: Hypothyroidism
     Dosage: 25 UNK (1 X 25 )
     Route: 048
  7. BUSPIRONE [Concomitant]
     Active Substance: BUSPIRONE HYDROCHLORIDE
     Indication: Anxiety disorder
     Dosage: 15 MG (3 X 5 MG)
     Route: 048
  8. GABAPENTIN [Concomitant]
     Active Substance: GABAPENTIN
     Indication: Pain
     Dosage: 400 MG (4 X 100 MG)
     Route: 048
  9. BACLOFEN [Concomitant]
     Active Substance: BACLOFEN
     Indication: Secondary progressive multiple sclerosis
     Dosage: 40 MG (4 X 10 MG)
     Route: 048
  10. TAFLUPROST [Concomitant]
     Active Substance: TAFLUPROST
     Indication: Blood pressure increased
     Dosage: UNK, QD
     Route: 065
  11. NOVALGIN [Concomitant]
     Indication: Pain
     Dosage: 10 DRP, QID
     Route: 048

REACTIONS (9)
  - Tremor [Recovered/Resolved]
  - Decreased appetite [Recovered/Resolved]
  - Oligodipsia [Recovered/Resolved]
  - Cognitive disorder [Recovering/Resolving]
  - Dizziness [Recovering/Resolving]
  - Visual impairment [Recovered/Resolved]
  - Dysgeusia [Recovered/Resolved]
  - Muscular weakness [Recovered/Resolved]
  - Dry mouth [Recovered/Resolved]

NARRATIVE: CASE EVENT DATE: 20230414
